FAERS Safety Report 11883401 (Version 1)
Quarter: 2015Q4

REPORT INFORMATION
  Report Type: Spontaneous
  Country: JP (occurrence: JP)
  Receive Date: 20151231
  Receipt Date: 20151231
  Transmission Date: 20160305
  Serious: Yes (Life-Threatening, Hospitalization, Other)
  Sender: FDA-Public Use
  Company Number: JP-WATSON-2015-14006

PATIENT
  Age: 72 Year
  Sex: Male

DRUGS (2)
  1. PREDNISOLONE (UNKNOWN) [Suspect]
     Active Substance: PREDNISOLONE
     Dosage: 30 MG, DAILY
     Route: 065
  2. PREDNISOLONE (UNKNOWN) [Suspect]
     Active Substance: PREDNISOLONE
     Indication: AORTIC ANEURYSM
     Dosage: 15 MG, DAILY
     Route: 065

REACTIONS (4)
  - Rash pruritic [Recovering/Resolving]
  - Musculoskeletal stiffness [Unknown]
  - Meningoencephalitis herpetic [Recovered/Resolved with Sequelae]
  - Human herpesvirus 6 infection [Unknown]
